FAERS Safety Report 5190219-7 (Version None)
Quarter: 2006Q4

REPORT INFORMATION
  Report Type: 
  Country: None (occurrence: None)
  Receive Date: 20061222
  Receipt Date: 20061029
  Transmission Date: 20070319
  Serious: No
  Sender: FDA-Public Use
  Company Number: US-AMGEN-KDL198639

PATIENT
  Sex: Male

DRUGS (8)
  1. ARANESP [Suspect]
     Indication: ANAEMIA
     Dates: start: 20061027
  2. METOPROLOL SUCCINATE [Concomitant]
  3. DILTIAZEM HCL [Concomitant]
  4. LOVASTATIN [Concomitant]
  5. ISOSORBIDE [Concomitant]
  6. FOLIC ACID [Concomitant]
  7. SLOW-FE [Concomitant]
  8. PHOSLO [Concomitant]

REACTIONS (2)
  - INFLUENZA LIKE ILLNESS [None]
  - URINE OUTPUT DECREASED [None]
